FAERS Safety Report 10360863 (Version 4)
Quarter: 2015Q2

REPORT INFORMATION
  Report Type: Spontaneous
  Country: US (occurrence: US)
  Receive Date: 20140804
  Receipt Date: 20150623
  Transmission Date: 20150821
  Serious: Yes (Hospitalization)
  Sender: FDA-Public Use
  Company Number: US-BAYER-2014-113353

PATIENT
  Age: 25 Year
  Sex: Female

DRUGS (2)
  1. MIRENA [Suspect]
     Active Substance: LEVONORGESTREL
     Indication: CONTRACEPTION
     Dosage: 20 MCG/24HR, CONT
     Route: 015
     Dates: start: 20101230, end: 20120724
  2. MAXALT [Concomitant]
     Active Substance: RIZATRIPTAN BENZOATE

REACTIONS (14)
  - Genital haemorrhage [None]
  - Emotional distress [None]
  - Fear [None]
  - Medical device complication [None]
  - Device dislocation [None]
  - Abdominal pain [None]
  - Depression [None]
  - Anxiety [None]
  - Depressed mood [None]
  - Pelvic pain [None]
  - Injury [None]
  - Medical device discomfort [None]
  - Internal injury [None]
  - Uterine perforation [None]

NARRATIVE: CASE EVENT DATE: 201207
